FAERS Safety Report 6908879-6 (Version None)
Quarter: 2010Q3

REPORT INFORMATION
  Report Type: 
  Country: None (occurrence: None)
  Receive Date: 20100805
  Receipt Date: 20100726
  Transmission Date: 20110219
  Serious: No
  Sender: FDA-Public Use
  Company Number: US-B.I. PHARMACEUTICALS,INC./RIDGEFIELD-2010-BP-08561BP

PATIENT
  Sex: Female

DRUGS (4)
  1. SPIRIVA [Suspect]
     Indication: CHRONIC OBSTRUCTIVE PULMONARY DISEASE
     Route: 055
     Dates: start: 20090701, end: 20100601
  2. SPIRIVA [Suspect]
     Dosage: 18 MCG
     Route: 055
     Dates: start: 20100601
  3. BENICAR [Concomitant]
     Indication: HYPERTENSION
     Dosage: 20 MG
     Route: 048
  4. LEVOTHYROXINE [Concomitant]
     Indication: HYPOTHYROIDISM
     Dosage: 100 MG
     Route: 048
     Dates: start: 19800101

REACTIONS (3)
  - DRY EYE [None]
  - EYE PAIN [None]
  - VISION BLURRED [None]
